FAERS Safety Report 12073927 (Version 2)
Quarter: 2016Q1

REPORT INFORMATION
  Report Type: Spontaneous
  Country: BR (occurrence: BR)
  Receive Date: 20160212
  Receipt Date: 20160315
  Transmission Date: 20160526
  Serious: Yes (Other)
  Sender: FDA-Public Use
  Company Number: BR-AMGEN-BRASP2016016857

PATIENT
  Age: 75 Year
  Sex: Male

DRUGS (1)
  1. ENBREL [Suspect]
     Active Substance: ETANERCEPT
     Indication: PRODUCT USED FOR UNKNOWN INDICATION
     Dosage: UNK
     Route: 065

REACTIONS (12)
  - Dry skin [Not Recovered/Not Resolved]
  - Pain in extremity [Unknown]
  - Pruritus [Unknown]
  - Feeling abnormal [Not Recovered/Not Resolved]
  - Haemorrhage [Unknown]
  - Monoplegia [Unknown]
  - Peripheral swelling [Not Recovered/Not Resolved]
  - Psoriasis [Unknown]
  - Skin fissures [Unknown]
  - Muscle spasms [Not Recovered/Not Resolved]
  - Pain [Recovering/Resolving]
  - Joint swelling [Recovering/Resolving]
